FAERS Safety Report 6361114-2 (Version None)
Quarter: 2009Q3

REPORT INFORMATION
  Report Type: 
  Country: None (occurrence: None)
  Receive Date: 20090916
  Receipt Date: 20090916
  Transmission Date: 20100115
  Serious: Yes (Other)
  Sender: FDA-Public Use
  Company Number: None

PATIENT
  Age: 65 Year
  Sex: Female
  Weight: 98.8842 kg

DRUGS (2)
  1. BUMETANIDE EMCURE (TEVA) TAB 1MG 242331/1 [PILL CK WITH LABEL] [Suspect]
     Indication: CARDIAC FAILURE
     Dosage: 1MG BID MOUTH
     Route: 048
     Dates: start: 20090713, end: 20090831
  2. BUMETANIDE EMCURE (TEVA) TAB 1MG 242331/1 [PILL CK WITH LABEL] [Suspect]
     Indication: RENAL FAILURE
     Dosage: 1MG BID MOUTH
     Route: 048
     Dates: start: 20090713, end: 20090831

REACTIONS (5)
  - CARDIAC FAILURE CONGESTIVE [None]
  - DRUG INEFFECTIVE [None]
  - FLUID RETENTION [None]
  - PRODUCT FRIABLE [None]
  - PRODUCT QUALITY ISSUE [None]
